FAERS Safety Report 8130772 (Version 3)
Quarter: 2014Q1

REPORT INFORMATION
  Report Type: Spontaneous
  Country: US (occurrence: US)
  Receive Date: 20110912
  Receipt Date: 20140127
  Transmission Date: 20141002
  Serious: Yes (Other)
  Sender: FDA-Public Use
  Company Number: US-BAYER-2011-083268

PATIENT
  Age: 25 Year
  Sex: Female
  Weight: 88 kg

DRUGS (4)
  1. YAZ [Suspect]
     Dosage: UNK
     Dates: start: 2002, end: 2006
  2. YAZ [Suspect]
     Dosage: UNK
     Dates: start: 2007, end: 2008
  3. YASMIN [Suspect]
     Dosage: UNK
     Dates: start: 2002, end: 2006
  4. YASMIN [Suspect]
     Dosage: UNK
     Dates: start: 2007, end: 2008

REACTIONS (5)
  - Cholecystectomy [None]
  - Chest pain [None]
  - Varicose vein [None]
  - Mental disorder [None]
  - Cholecystitis chronic [None]
